FAERS Safety Report 25190632 (Version 1)
Quarter: 2025Q2

REPORT INFORMATION
  Report Type: Report from Study
  Country: US (occurrence: US)
  Receive Date: 20250411
  Receipt Date: 20250411
  Transmission Date: 20250717
  Serious: Yes (Other)
  Sender: IOVANCE BIOTHERAPEUTICS
  Company Number: US-IOVANCE BIOTHERAPEUTICS INC.-IOV2025000029

PATIENT
  Age: 60 Year
  Sex: Male

DRUGS (5)
  1. ALDESLEUKIN [Suspect]
     Active Substance: ALDESLEUKIN
     Indication: Malignant fibrous histiocytoma
     Route: 058
     Dates: start: 20250328, end: 20250330
  2. CYCLOPHOSPHAMIDE [Suspect]
     Active Substance: CYCLOPHOSPHAMIDE
     Indication: Malignant fibrous histiocytoma
     Route: 042
     Dates: start: 20250322, end: 20250323
  3. FLUDARABINE [Suspect]
     Active Substance: FLUDARABINE PHOSPHATE
     Indication: Malignant fibrous histiocytoma
     Route: 042
     Dates: start: 20250322, end: 20250326
  4. LIFILEUCEL [Suspect]
     Active Substance: LIFILEUCEL
     Indication: Malignant fibrous histiocytoma
     Route: 042
     Dates: start: 20250327, end: 20250327
  5. NARCAN [Suspect]
     Active Substance: NALOXONE HYDROCHLORIDE
     Indication: Sedative therapy
     Route: 065

REACTIONS (3)
  - Somnolence [Recovered/Resolved]
  - Chills [Unknown]
  - Pyrexia [Unknown]

NARRATIVE: CASE EVENT DATE: 20250328
